FAERS Safety Report 12378555 (Version 1)
Quarter: 2016Q2

REPORT INFORMATION
  Report Type: Spontaneous
  Country: US (occurrence: US)
  Receive Date: 20160517
  Receipt Date: 20160517
  Transmission Date: 20160815
  Serious: No
  Sender: FDA-Public Use
  Company Number: US-RELYPSA-RLY2016000214

PATIENT

DRUGS (22)
  1. NIFEDIPINE ER OSMOTIC RELEASE [Concomitant]
  2. VELTASSA [Suspect]
     Active Substance: PATIROMER
     Indication: HYPERKALAEMIA
     Dosage: 8.4 G, QD
     Route: 048
     Dates: start: 20160303
  3. PROTONIX                           /00661201/ [Concomitant]
     Active Substance: OMEPRAZOLE
  4. LEVEMIR [Concomitant]
     Active Substance: INSULIN DETEMIR
  5. CLONAZEPAM. [Concomitant]
     Active Substance: CLONAZEPAM
  6. BENADRYL [Concomitant]
     Active Substance: DIPHENHYDRAMINE HYDROCHLORIDE
  7. LASIX [Concomitant]
     Active Substance: FUROSEMIDE
  8. PROCRIT [Concomitant]
     Active Substance: ERYTHROPOIETIN
  9. ULTRAM ER [Concomitant]
     Active Substance: TRAMADOL HYDROCHLORIDE
  10. ESCITALOPRAM OXALATE. [Concomitant]
     Active Substance: ESCITALOPRAM OXALATE
  11. PETROLATUM. [Concomitant]
     Active Substance: PETROLATUM
  12. SYNTHROID [Concomitant]
     Active Substance: LEVOTHYROXINE SODIUM
  13. NEURONTIN [Concomitant]
     Active Substance: GABAPENTIN
  14. BD PEN NEEDLE MINI U/F [Concomitant]
  15. PROGRAF [Concomitant]
     Active Substance: TACROLIMUS\TACROLIMUS ANHYDROUS
  16. REGLAN [Concomitant]
     Active Substance: METOCLOPRAMIDE HYDROCHLORIDE
  17. WHITE [Concomitant]
  18. ERGOCALCIFEROL. [Concomitant]
     Active Substance: ERGOCALCIFEROL
  19. VICTOZA [Concomitant]
     Active Substance: LIRAGLUTIDE
  20. BIOTIN                             /08249501/ [Concomitant]
     Dosage: 5000 UNK, UNK
  21. LIPITOR [Concomitant]
     Active Substance: ATORVASTATIN CALCIUM
  22. PROAIR HFA [Concomitant]
     Active Substance: ALBUTEROL SULFATE

REACTIONS (3)
  - Oropharyngeal pain [Unknown]
  - Influenza [Unknown]
  - Headache [Unknown]

NARRATIVE: CASE EVENT DATE: 20160317
